FAERS Safety Report 10215221 (Version 1)
Quarter: 2014Q2

REPORT INFORMATION
  Report Type: Spontaneous
  Country: US (occurrence: US)
  Receive Date: 20140603
  Receipt Date: 20140603
  Transmission Date: 20141212
  Serious: Yes (Other)
  Sender: FDA-Public Use
  Company Number: PHEH2014US010891

PATIENT
  Sex: Female

DRUGS (2)
  1. RECLAST [Suspect]
     Dosage: UNK
     Route: 042
     Dates: start: 2011
  2. RECLAST [Suspect]
     Dosage: UNK
     Route: 042
     Dates: start: 2012

REACTIONS (3)
  - Multiple fractures [Unknown]
  - Ankle fracture [Unknown]
  - Foot fracture [Unknown]
